FAERS Safety Report 22068439 (Version 1)
Quarter: 2023Q1

REPORT INFORMATION
  Report Type: Spontaneous
  Country: PT (occurrence: PT)
  Receive Date: 20230307
  Receipt Date: 20230307
  Transmission Date: 20230418
  Serious: Yes (Hospitalization, Other)
  Sender: FDA-Public Use
  Company Number: PT-Accord-291034

PATIENT
  Age: 78 Year
  Sex: Male

DRUGS (5)
  1. ALLOPURINOL [Suspect]
     Active Substance: ALLOPURINOL
     Indication: Product used for unknown indication
  2. LEVETIRACETAM [Suspect]
     Active Substance: LEVETIRACETAM
     Indication: Product used for unknown indication
  3. PHENYTOIN SODIUM [Suspect]
     Active Substance: PHENYTOIN SODIUM
     Indication: Product used for unknown indication
  4. FLUCONAZOLE [Concomitant]
     Active Substance: FLUCONAZOLE
     Indication: Respiratory tract infection
  5. LEVOFLOXACIN [Concomitant]
     Active Substance: LEVOFLOXACIN
     Indication: Respiratory tract infection

REACTIONS (7)
  - Stevens-Johnson syndrome [Recovered/Resolved with Sequelae]
  - Ulcerative keratitis [Recovered/Resolved with Sequelae]
  - Oropharyngeal candidiasis [Recovered/Resolved]
  - Odynophagia [Recovered/Resolved]
  - Conjunctival hyperaemia [Recovered/Resolved]
  - Lymphopenia [Recovered/Resolved]
  - Productive cough [Recovered/Resolved]
